FAERS Safety Report 5945580-X (Version None)
Quarter: 2008Q4

REPORT INFORMATION
  Report Type: 
  Country: None (occurrence: None)
  Receive Date: 20081107
  Receipt Date: 20081027
  Transmission Date: 20090506
  Serious: Yes (Other)
  Sender: FDA-Public Use
  Company Number: GB-PFIZER INC-2008091076

PATIENT
  Sex: Male

DRUGS (1)
  1. CAVERJECT [Suspect]
     Indication: ERECTILE DYSFUNCTION

REACTIONS (6)
  - DRUG INEFFECTIVE [None]
  - INJECTION SITE SWELLING [None]
  - NO REACTION ON PREVIOUS EXPOSURE TO DRUG [None]
  - PENILE PAIN [None]
  - PENIS DISORDER [None]
  - PRODUCT QUALITY ISSUE [None]
